FAERS Safety Report 24333454 (Version 2)
Quarter: 2024Q3

REPORT INFORMATION
  Report Type: Spontaneous
  Country: US (occurrence: US)
  Receive Date: 20240918
  Receipt Date: 20240919
  Transmission Date: 20241016
  Serious: No
  Sender: ALKERMES
  Company Number: US-ALKERMES INC.-ALK-2024-002344

PATIENT
  Age: 47 Year
  Sex: Male
  Weight: 62.585 kg

DRUGS (2)
  1. VIVITROL [Suspect]
     Active Substance: NALTREXONE
     Indication: Alcoholism
     Dosage: 380 MILLIGRAM, QMO
     Route: 030
     Dates: start: 20240904, end: 20240904
  2. VIVITROL [Suspect]
     Active Substance: NALTREXONE
     Indication: Drug dependence
     Dosage: 380 MILLIGRAM, QMO
     Route: 030

REACTIONS (9)
  - Off label use [Unknown]
  - Chromaturia [Unknown]
  - Feeling of body temperature change [Unknown]
  - Hypersomnia [Unknown]
  - Vomiting [Unknown]
  - Nausea [Unknown]
  - Hyperhidrosis [Unknown]
  - Restlessness [Unknown]
  - Pyrexia [Unknown]

NARRATIVE: CASE EVENT DATE: 20240905
